FAERS Safety Report 12845298 (Version 2)
Quarter: 2016Q4

REPORT INFORMATION
  Report Type: Spontaneous
  Country: TR (occurrence: TR)
  Receive Date: 20161013
  Receipt Date: 20161021
  Transmission Date: 20170207
  Serious: Yes (Hospitalization)
  Sender: FDA-Public Use
  Company Number: TR-DEPOMED, INC.-TR-2016DEP012491

PATIENT
  Age: 52 Year
  Sex: Female

DRUGS (1)
  1. DICLOFENAC [Suspect]
     Active Substance: DICLOFENAC
     Indication: PAIN
     Dosage: UNK, QD FOR 7 DAYS
     Route: 030

REACTIONS (1)
  - Soft tissue infection [Recovered/Resolved]
